FAERS Safety Report 15708911 (Version 19)
Quarter: 2020Q3

REPORT INFORMATION
  Report Type: Report from Study
  Country: DO (occurrence: DO)
  Receive Date: 20181211
  Receipt Date: 20200911
  Transmission Date: 20201102
  Serious: Yes (Other)
  Sender: FDA-Public Use
  Company Number: PHHY2018DO109960

PATIENT
  Age: 54 Year
  Sex: Male
  Weight: 81.64 kg

DRUGS (18)
  1. VITAMIN B [Concomitant]
     Active Substance: VITAMIN B
     Indication: MULTIPLE SCLEROSIS
     Dosage: UNK, QD
     Route: 065
  2. GILENYA [Suspect]
     Active Substance: FINGOLIMOD HYDROCHLORIDE
     Dosage: 0.5 MG, QD (BEFORE GOING TO SLEEP)
     Route: 065
  3. SEROTONIN [Suspect]
     Active Substance: SEROTONIN
     Indication: PRODUCT USED FOR UNKNOWN INDICATION
     Dosage: UNK
     Route: 065
  4. MAGNESIUM [Concomitant]
     Active Substance: MAGNESIUM
     Indication: MENTAL DISORDER
     Dosage: UNK
     Route: 065
  5. BETONIN [Concomitant]
     Indication: PRODUCT USED FOR UNKNOWN INDICATION
     Dosage: UNK, QD
     Route: 065
  6. GILENYA [Suspect]
     Active Substance: FINGOLIMOD HYDROCHLORIDE
     Dosage: 0.5 MG, QD
     Route: 048
     Dates: start: 20180920
  7. APROVEL [Concomitant]
     Active Substance: IRBESARTAN
     Indication: MENTAL DISORDER
     Dosage: 150 MG, QD
     Route: 065
  8. METHYLCOBAL [Concomitant]
     Active Substance: METHYLCOBALAMIN
     Indication: PRODUCT USED FOR UNKNOWN INDICATION
     Dosage: UNK, QD
     Route: 065
  9. LANZEP [Concomitant]
     Indication: MENTAL DISORDER
     Dosage: 5 OT, BID
     Route: 065
  10. OLANZAPINE. [Concomitant]
     Active Substance: OLANZAPINE
     Indication: PRODUCT USED FOR UNKNOWN INDICATION
     Dosage: 5 MG, QD (STARTED 3 YEARS AGO)
     Route: 048
  11. VITAMIN B3 [Concomitant]
     Active Substance: NIACIN
     Indication: PRODUCT USED FOR UNKNOWN INDICATION
     Dosage: UNK
     Route: 065
  12. BACLOFEN. [Concomitant]
     Active Substance: BACLOFEN
     Indication: PRODUCT USED FOR UNKNOWN INDICATION
     Route: 065
  13. WELLBUTRIN [Concomitant]
     Active Substance: BUPROPION HYDROCHLORIDE
     Indication: PRODUCT USED FOR UNKNOWN INDICATION
     Dosage: 150 MG, QD (STARTED 3 YEARS AGO)
     Route: 048
  14. GILENYA [Suspect]
     Active Substance: FINGOLIMOD HYDROCHLORIDE
     Indication: RELAPSING-REMITTING MULTIPLE SCLEROSIS
     Dosage: 0.5 MG, QD
     Route: 048
     Dates: start: 201808
  15. TRIPTONE [Suspect]
     Active Substance: SCOPOLAMINE HYDROBROMIDE
     Indication: PRODUCT USED FOR UNKNOWN INDICATION
     Dosage: UNK
     Route: 065
  16. BIOTIN [Concomitant]
     Active Substance: BIOTIN
     Indication: PRODUCT USED FOR UNKNOWN INDICATION
     Dosage: UNK
     Route: 065
  17. GILENYA [Suspect]
     Active Substance: FINGOLIMOD HYDROCHLORIDE
     Indication: MULTIPLE SCLEROSIS
     Dosage: 0.5 MG, QD (BEFORE BREAKFAST)
     Route: 065
  18. GILENYA [Suspect]
     Active Substance: FINGOLIMOD HYDROCHLORIDE
     Dosage: 0.5 MG, BID
     Route: 048
     Dates: start: 20190920

REACTIONS (42)
  - Brain injury [Not Recovered/Not Resolved]
  - Blindness unilateral [Unknown]
  - Discomfort [Recovered/Resolved]
  - General physical health deterioration [Not Recovered/Not Resolved]
  - Diarrhoea [Recovered/Resolved]
  - Therapeutic product ineffective [Not Recovered/Not Resolved]
  - Malaise [Unknown]
  - Eye disorder [Unknown]
  - Weight decreased [Unknown]
  - Pyrexia [Unknown]
  - Immunodeficiency [Unknown]
  - Productive cough [Recovered/Resolved]
  - Multiple sclerosis relapse [Unknown]
  - Injury [Not Recovered/Not Resolved]
  - Asthenia [Unknown]
  - Fall [Recovering/Resolving]
  - Headache [Unknown]
  - Chest pain [Recovered/Resolved]
  - Muscle spasticity [Unknown]
  - Limb discomfort [Unknown]
  - Laziness [Unknown]
  - Lung disorder [Unknown]
  - Nasopharyngitis [Unknown]
  - Gait disturbance [Unknown]
  - Muscular weakness [Unknown]
  - Feeling hot [Unknown]
  - Influenza B virus test positive [Unknown]
  - Syncope [Recovered/Resolved]
  - Pneumonia [Recovered/Resolved]
  - Pulmonary congestion [Unknown]
  - Influenza A virus test positive [Unknown]
  - Heart rate decreased [Unknown]
  - Rash [Unknown]
  - Dyspnoea [Unknown]
  - Cardiac disorder [Unknown]
  - Depressed mood [Unknown]
  - Emotional disorder [Unknown]
  - Hypertension [Unknown]
  - Hepatic enzyme increased [Unknown]
  - Secondary progressive multiple sclerosis [Not Recovered/Not Resolved]
  - Blood pressure fluctuation [Unknown]
  - Muscular weakness [Recovered/Resolved]

NARRATIVE: CASE EVENT DATE: 20200211
